FAERS Safety Report 24865918 (Version 1)
Quarter: 2025Q1

REPORT INFORMATION
  Report Type: Spontaneous
  Country: CN (occurrence: CN)
  Receive Date: 20250121
  Receipt Date: 20250121
  Transmission Date: 20250409
  Serious: Yes (Other)
  Sender: JOHNSON AND JOHNSON
  Company Number: CN-JNJFOC-20241272889

PATIENT
  Age: 47 Year
  Sex: Female

DRUGS (3)
  1. DARZALEX [Suspect]
     Active Substance: DARATUMUMAB
     Indication: Acute myelomonocytic leukaemia
     Route: 041
     Dates: start: 20241104, end: 20241104
  2. DEXAMETHASONE [Concomitant]
     Active Substance: DEXAMETHASONE
     Indication: Antiallergic therapy
     Route: 065
  3. METHYLPREDNISOLONE [Concomitant]
     Active Substance: METHYLPREDNISOLONE
     Indication: Antiallergic therapy
     Route: 065

REACTIONS (8)
  - Hypersensitivity [Recovering/Resolving]
  - Oropharyngeal discomfort [Recovering/Resolving]
  - Productive cough [Recovering/Resolving]
  - Rhinorrhoea [Recovering/Resolving]
  - Rash erythematous [Recovering/Resolving]
  - Hypoaesthesia [Recovering/Resolving]
  - Facial discomfort [Recovering/Resolving]
  - Off label use [Unknown]

NARRATIVE: CASE EVENT DATE: 20241104
